FAERS Safety Report 8103882-5 (Version None)
Quarter: 2012Q1

REPORT INFORMATION
  Report Type: 
  Country: None (occurrence: None)
  Receive Date: 20120201
  Receipt Date: 20120126
  Transmission Date: 20120608
  Serious: Yes (Other)
  Sender: FDA-Public Use
  Company Number: DE-PFIZER INC-2012021219

PATIENT
  Age: 43 Year
  Sex: Female

DRUGS (1)
  1. LYRICA [Suspect]
     Dosage: 75 MG, 1X/DAY
     Dates: start: 20120125

REACTIONS (5)
  - SPEECH DISORDER [None]
  - TONGUE PARALYSIS [None]
  - PALLOR [None]
  - COORDINATION ABNORMAL [None]
  - FEELING DRUNK [None]
